FAERS Safety Report 8285186-3 (Version None)
Quarter: 2012Q2

REPORT INFORMATION
  Report Type: 
  Country: None (occurrence: None)
  Receive Date: 20120413
  Receipt Date: 20120109
  Transmission Date: 20120825
  Serious: No
  Sender: FDA-Public Use
  Company Number: US-ASTRAZENECA-2012SE01566

PATIENT
  Age: 76 Year
  Sex: Male
  Weight: 122.5 kg

DRUGS (2)
  1. NEXIUM [Suspect]
     Indication: BLOOD TRIGLYCERIDES ABNORMAL
     Route: 048
     Dates: start: 20111230
  2. NEXIUM [Suspect]
     Indication: BLOOD CHOLESTEROL ABNORMAL
     Route: 048
     Dates: start: 20111230

REACTIONS (2)
  - OFF LABEL USE [None]
  - BLOOD GLUCOSE INCREASED [None]
